FAERS Safety Report 17846892 (Version 1)
Quarter: 2020Q3

REPORT INFORMATION
  Report Type: Spontaneous
  Country: US (occurrence: US)
  Receive Date: 20200601
  Receipt Date: 20200601
  Transmission Date: 20201104
  Serious: Yes (Hospitalization)
  Sender: FDA-Public Use
  Company Number: None

PATIENT
  Age: 45 Year
  Sex: Female
  Weight: 89.55 kg

DRUGS (13)
  1. LACTULOSE. [Concomitant]
     Active Substance: LACTULOSE
     Dates: start: 20190903
  2. ASPIRIN. [Concomitant]
     Active Substance: ASPIRIN
     Dates: start: 20200421, end: 20200521
  3. SENNA?DOCUSATE [Concomitant]
     Active Substance: DOCUSATE SODIUM\SENNOSIDES
     Dates: start: 20190827
  4. LIDOCAINE MUCOSAL SOLUTION [Concomitant]
     Dates: start: 20200505
  5. OXYCODONE [Concomitant]
     Active Substance: OXYCODONE
     Dates: start: 20200508
  6. DEXAMETHASONE. [Concomitant]
     Active Substance: DEXAMETHASONE
     Dates: start: 20200501
  7. POLYETHYLENE [Concomitant]
     Active Substance: HIGH DENSITY POLYETHYLENE
     Dates: start: 20190827
  8. PROMETHAZINE [Concomitant]
     Active Substance: PROMETHAZINE HYDROCHLORIDE
     Dates: start: 20190731
  9. ATORVASTATIN [Concomitant]
     Active Substance: ATORVASTATIN
     Dates: start: 20200420, end: 20200520
  10. HYDROCODONE [Concomitant]
     Active Substance: HYDROCODONE
     Dates: start: 20200505
  11. SACITUZUMAB GOVITECAN. [Suspect]
     Active Substance: SACITUZUMAB GOVITECAN
     Indication: BREAST CANCER METASTATIC
     Route: 042
     Dates: start: 20200508, end: 20200515
  12. LOPERAMIDE [Concomitant]
     Active Substance: LOPERAMIDE
     Dates: start: 20200501
  13. ONDANSETRON [Concomitant]
     Active Substance: ONDANSETRON
     Dates: start: 20190731

REACTIONS (5)
  - Hypokalaemia [None]
  - Anaemia [None]
  - Leukopenia [None]
  - Dehydration [None]
  - Odynophagia [None]

NARRATIVE: CASE EVENT DATE: 20200519
